FAERS Safety Report 10354794 (Version 1)
Quarter: 2014Q3

REPORT INFORMATION
  Report Type: Spontaneous
  Country: US (occurrence: US)
  Receive Date: 20140731
  Receipt Date: 20140731
  Transmission Date: 20150326
  Serious: Yes (Other)
  Sender: FDA-Public Use
  Company Number: US-TEVA-498137USA

PATIENT
  Age: 62 Year
  Sex: Female

DRUGS (3)
  1. DILTIAZEM [Suspect]
     Active Substance: DILTIAZEM
     Indication: OVERDOSE
     Route: 048
  2. VALSARTAN. [Suspect]
     Active Substance: VALSARTAN
     Indication: OVERDOSE
     Route: 048
  3. FAT EMULSION NOS [Suspect]
     Active Substance: EGG PHOSPHOLIPIDS\SAFFLOWER OIL\SOYBEAN OIL
     Indication: OFF LABEL USE
     Dosage: 120ML
     Route: 040

REACTIONS (5)
  - Bradycardia [Unknown]
  - Off label use [Unknown]
  - Unresponsive to stimuli [Unknown]
  - Blood test abnormal [Unknown]
  - Hypotension [Unknown]
